FAERS Safety Report 6925410-X (Version None)
Quarter: 2010Q3

REPORT INFORMATION
  Report Type: 
  Country: None (occurrence: None)
  Receive Date: 20100816
  Receipt Date: 20100812
  Transmission Date: 20110219
  Serious: Yes (Life-Threatening)
  Sender: FDA-Public Use
  Company Number: BR-ROCHE-687176

PATIENT
  Sex: Male
  Weight: 60 kg

DRUGS (1)
  1. METHOXY POLYETHYLENE GLYCOL-EPOETIN BETA [Suspect]
     Dosage: FROM: PFS, LAST DOSE PRIOR TO SAE ON 10 NOVEMBER 2009. 2
     Route: 058
     Dates: start: 20090723

REACTIONS (1)
  - COLON CANCER [None]
